FAERS Safety Report 4618846-3 (Version None)
Quarter: 2005Q1

REPORT INFORMATION
  Report Type: 
  Country: None (occurrence: None)
  Receive Date: 20050323
  Receipt Date: 20050307
  Transmission Date: 20050727
  Serious: Yes (Hospitalization, Other)
  Sender: FDA-Public Use
  Company Number: US_0410106336

PATIENT
  Age: 34 Year
  Sex: Male
  Weight: 90 kg

DRUGS (8)
  1. ZYPREXA [Suspect]
     Indication: SCHIZOPHRENIA, PARANOID TYPE
     Dosage: 15 MG AT BEDTIME
     Dates: start: 19990201, end: 20020712
  2. HUMALOG [Suspect]
     Indication: DIABETES MELLITUS INSULIN-DEPENDENT
     Dates: start: 19990801
  3. TOPAMAX [Concomitant]
  4. QUETIAPINE FUMARATE [Concomitant]
  5. RISPERIDONE [Concomitant]
  6. DEPAKOTE [Concomitant]
  7. LIPITOR [Concomitant]
  8. PRILOSEC [Concomitant]

REACTIONS (33)
  - ANORECTAL DISORDER [None]
  - BLOOD CHLORIDE INCREASED [None]
  - BLOOD SODIUM DECREASED [None]
  - BREATH ODOUR [None]
  - BRONCHITIS [None]
  - CHRONIC OBSTRUCTIVE PULMONARY DISEASE [None]
  - COUGH [None]
  - DIABETES MELLITUS [None]
  - DIABETES MELLITUS INSULIN-DEPENDENT [None]
  - DIABETIC KETOACIDOSIS [None]
  - DIABETIC NEUROPATHY [None]
  - DRY MOUTH [None]
  - FATIGUE [None]
  - HAEMATURIA [None]
  - HEPATITIS VIRAL [None]
  - HYPERAEMIA [None]
  - HYPERCHOLESTEROLAEMIA [None]
  - HYPERTENSION [None]
  - HYPOGLYCAEMIA [None]
  - HYPOKALAEMIA [None]
  - KETOACIDOSIS [None]
  - LETHARGY [None]
  - NOCTURIA [None]
  - OEDEMA PERIPHERAL [None]
  - ONYCHOMYCOSIS [None]
  - PANCREATITIS [None]
  - RECTAL HAEMORRHAGE [None]
  - THIRST [None]
  - TREATMENT NONCOMPLIANCE [None]
  - URINE OUTPUT INCREASED [None]
  - VISION BLURRED [None]
  - WEIGHT DECREASED [None]
  - WHEEZING [None]
